FAERS Safety Report 5935799-6 (Version None)
Quarter: 2008Q4

REPORT INFORMATION
  Report Type: 
  Country: None (occurrence: None)
  Receive Date: 20081030
  Receipt Date: 20081022
  Transmission Date: 20090506
  Serious: Yes (Other)
  Sender: FDA-Public Use
  Company Number: PHHY2008FR25738

PATIENT
  Age: 82 Year
  Sex: Female

DRUGS (3)
  1. ACLASTA [Suspect]
     Indication: OSTEOPOROSIS POSTMENOPAUSAL
     Dosage: ONCE/SINGLE
     Dates: start: 20081001
  2. VASTAREL [Concomitant]
  3. CORDIPATCH [Concomitant]

REACTIONS (7)
  - ANOREXIA [None]
  - FATIGUE [None]
  - JOINT FLUID DRAINAGE [None]
  - JOINT SWELLING [None]
  - MALAISE [None]
  - PARALYSIS [None]
  - PRESYNCOPE [None]
